FAERS Safety Report 17009615 (Version 1)
Quarter: 2019Q4

REPORT INFORMATION
  Report Type: Spontaneous
  Country: US (occurrence: US)
  Receive Date: 20190930
  Receipt Date: 20190930
  Transmission Date: 20200122
  Serious: Yes (Other)
  Sender: FDA-Public Use
  Company Number: None

PATIENT
  Age: 47 Year
  Sex: Male

DRUGS (18)
  1. HYDROXYCHLOR [Concomitant]
     Active Substance: HYDROXYCHLOROQUINE
  2. CARVEDILOL. [Concomitant]
     Active Substance: CARVEDILOL
  3. CYANOCOBALAM [Concomitant]
     Active Substance: CYANOCOBALAMIN
  4. SUMATRIPTAN. [Concomitant]
     Active Substance: SUMATRIPTAN
  5. BENLYSTA [Suspect]
     Active Substance: BELIMUMAB
     Indication: SYSTEMIC LUPUS ERYTHEMATOSUS
     Route: 058
     Dates: start: 20190216
  6. ADVAIR HFA [Concomitant]
     Active Substance: FLUTICASONE PROPIONATE\SALMETEROL XINAFOATE
  7. AMLODIPINE [Concomitant]
     Active Substance: AMLODIPINE BESYLATE
  8. AMOX/K CLAV [Concomitant]
     Active Substance: AMOXICILLIN\CLAVULANATE POTASSIUM
  9. ISOSORB MONO [Concomitant]
     Active Substance: ISOSORBIDE MONONITRATE
  10. PREDNISONE. [Concomitant]
     Active Substance: PREDNISONE
  11. AZATHIOPRINE. [Concomitant]
     Active Substance: AZATHIOPRINE
  12. PRAVASTATIN. [Concomitant]
     Active Substance: PRAVASTATIN
  13. TOPIRAMATE. [Concomitant]
     Active Substance: TOPIRAMATE
  14. PROCHLORPER [Concomitant]
  15. ALBUTEROL AER [Concomitant]
  16. DICLOFENAC [Concomitant]
     Active Substance: DICLOFENAC
  17. ONDANSETRON [Concomitant]
     Active Substance: ONDANSETRON
  18. XIIDRA BRO [Concomitant]

REACTIONS (4)
  - Optic neuritis [None]
  - Product dose omission [None]
  - Migraine [None]
  - Headache [None]

NARRATIVE: CASE EVENT DATE: 201909
